FAERS Safety Report 7743935-4 (Version None)
Quarter: 2011Q3

REPORT INFORMATION
  Report Type: 
  Country: None (occurrence: None)
  Receive Date: 20110912
  Receipt Date: 20110902
  Transmission Date: 20111222
  Serious: Yes (Hospitalization, Disabling)
  Sender: FDA-Public Use
  Company Number: FR-GLAXOSMITHKLINE-B0733598A

PATIENT
  Sex: Female

DRUGS (8)
  1. CYTARABINE [Suspect]
     Indication: ACUTE MYELOID LEUKAEMIA
     Dates: start: 19990828
  2. CYCLOPHOSPHAMIDE [Concomitant]
     Indication: BONE MARROW TRANSPLANT
     Dosage: 200MGM2 SEE DOSAGE TEXT
     Route: 065
     Dates: start: 20100101, end: 20100101
  3. BUSULFAN [Suspect]
     Indication: BONE MARROW TRANSPLANT
     Dosage: 16MGK CUMULATIVE DOSE
     Route: 065
     Dates: start: 20000301, end: 20000301
  4. MITOXANTRONE [Concomitant]
     Indication: ACUTE MYELOID LEUKAEMIA
     Dosage: 12MGM2 PER DAY
     Route: 065
     Dates: start: 19990913
  5. AMSACRINE [Concomitant]
     Indication: ACUTE MYELOID LEUKAEMIA
     Route: 065
     Dates: start: 19990101
  6. AUTOLOGOUS STEM CELL INFUSION [Concomitant]
     Indication: ACUTE MYELOID LEUKAEMIA
     Dates: start: 20000201
  7. ETOPOSIDE [Concomitant]
     Indication: ACUTE MYELOID LEUKAEMIA
     Route: 065
     Dates: start: 19990101
  8. IDARUBICIN HCL [Concomitant]
     Indication: ACUTE MYELOID LEUKAEMIA
     Dosage: 8MGM2 PER DAY
     Route: 065
     Dates: start: 19990828

REACTIONS (17)
  - MUSCLE DISORDER [None]
  - EXTENSOR PLANTAR RESPONSE [None]
  - MUSCLE SPASTICITY [None]
  - EXTRAPYRAMIDAL DISORDER [None]
  - GAIT DISTURBANCE [None]
  - FALL [None]
  - HYPERREFLEXIA [None]
  - PARAESTHESIA [None]
  - MOTOR DYSFUNCTION [None]
  - SPINAL DISORDER [None]
  - NEUROLOGICAL SYMPTOM [None]
  - PARAPARESIS [None]
  - DYSAESTHESIA [None]
  - LOSS OF PROPRIOCEPTION [None]
  - MYELITIS TRANSVERSE [None]
  - PARAPLEGIA [None]
  - SENSORY DISTURBANCE [None]
